FAERS Safety Report 20719199 (Version 1)
Quarter: 2022Q2

REPORT INFORMATION
  Report Type: Spontaneous
  Country: CN (occurrence: CN)
  Receive Date: 20220418
  Receipt Date: 20220418
  Transmission Date: 20220721
  Serious: Yes (Hospitalization)
  Sender: FDA-Public Use
  Company Number: CN-BAXTER-2022BAX008281

PATIENT
  Age: 38 Year
  Sex: Female
  Weight: 69 kg

DRUGS (4)
  1. CYCLOPHOSPHAMIDE [Suspect]
     Active Substance: CYCLOPHOSPHAMIDE
     Indication: Breast cancer female
     Dosage: CYCLOPHOSPHAMIDE FOR INJECTION (1000 MG) + 0.9% SODIUM CHLORIDE INJECTION (100 ML)
     Route: 041
     Dates: start: 20220323, end: 20220323
  2. SODIUM CHLORIDE [Suspect]
     Active Substance: SODIUM CHLORIDE
     Indication: Medication dilution
     Dosage: CYCLOPHOSPHAMIDE FOR INJECTION (1000 MG) + 0.9% SODIUM CHLORIDE INJECTION (100 ML), D1
     Route: 041
     Dates: start: 20220323, end: 20220323
  3. SODIUM CHLORIDE [Suspect]
     Active Substance: SODIUM CHLORIDE
     Dosage: PACLITAXEL FOR INJECTION (ALBUMIN BOUND) (450 MG) + 0.9% SODIUM CHLORIDE INJECTION (100 ML), D1
     Route: 041
     Dates: start: 20220323, end: 20220323
  4. PACLITAXEL [Suspect]
     Active Substance: PACLITAXEL
     Indication: Breast cancer female
     Dosage: PACLITAXEL FOR INJECTION (ALBUMIN BOUND) (450 MG) + 0.9% SODIUM CHLORIDE INJECTION (100 ML), D1
     Route: 041
     Dates: start: 20220323, end: 20220323

REACTIONS (1)
  - Myelosuppression [Recovered/Resolved]

NARRATIVE: CASE EVENT DATE: 20220329
